FAERS Safety Report 23040266 (Version 1)
Quarter: 2023Q4

REPORT INFORMATION
  Report Type: Spontaneous
  Country: GB (occurrence: GB)
  Receive Date: 20231006
  Receipt Date: 20231006
  Transmission Date: 20240110
  Serious: Yes (Other)
  Sender: FDA-Public Use
  Company Number: GB-MHRA-MED-202309271453364970-MJVTW

PATIENT
  Age: 60 Year
  Sex: Male
  Weight: 95 kg

DRUGS (1)
  1. AMLODIPINE [Suspect]
     Active Substance: AMLODIPINE BESYLATE
     Indication: Hypertension
     Dosage: 10 MILLIGRAM DAILY; 10 MG ONCE EACH MORNING
     Route: 065
     Dates: end: 20230905

REACTIONS (6)
  - Oedema [Recovering/Resolving]
  - Dyspepsia [Recovered/Resolved]
  - Visual impairment [Recovered/Resolved]
  - Pain [Recovering/Resolving]
  - Dyspnoea [Unknown]
  - Skin haemorrhage [Recovering/Resolving]
